FAERS Safety Report 9520652 (Version 1)
Quarter: 2013Q3

REPORT INFORMATION
  Report Type: Spontaneous
  Country: FR (occurrence: FR)
  Receive Date: 20130913
  Receipt Date: 20130913
  Transmission Date: 20140515
  Serious: Yes (Hospitalization)
  Sender: FDA-Public Use
  Company Number: FR-009507513-1309FRA001401

PATIENT
  Age: 40 Year
  Sex: Female

DRUGS (6)
  1. ISENTRESS [Suspect]
     Indication: HIV INFECTION
     Dosage: 800 MG, QD
     Route: 048
     Dates: start: 20121116, end: 20130618
  2. TRUVADA [Suspect]
     Indication: HIV INFECTION
     Dosage: 1 DF, QD
     Route: 048
     Dates: start: 20121116, end: 20130618
  3. ATHYMIL [Concomitant]
     Dosage: 10 MG, QD
     Route: 048
     Dates: start: 20130514, end: 20130530
  4. IMOVANE [Concomitant]
     Dosage: 3.75 MG, QD
     Route: 048
     Dates: start: 20130514
  5. DEROXAT [Concomitant]
     Dosage: UNK
     Dates: end: 20130514
  6. ACETAMINOPHEN [Concomitant]
     Dosage: UNK, PRN

REACTIONS (2)
  - Dyspnoea exertional [Recovered/Resolved]
  - Orthostatic hypotension [Recovered/Resolved]
